FAERS Safety Report 5237084-7 (Version None)
Quarter: 2007Q1

REPORT INFORMATION
  Report Type: 
  Country: None (occurrence: None)
  Receive Date: 20061208
  Receipt Date: 20050303
  Transmission Date: 20070707
  Serious: Yes (Other)
  Sender: FDA-Public Use
  Company Number: 2005UW03412

PATIENT
  Age: 73 Year
  Sex: Female
  Weight: 71.667 kg

DRUGS (6)
  1. CRESTOR [Suspect]
     Indication: BLOOD CHOLESTEROL INCREASED
     Dosage: ONE-HALF OF 10 MG TABLET
  2. COUMADIN [Concomitant]
  3. SYNTHROID [Concomitant]
  4. DYAZIDE [Concomitant]
  5. AMARYL [Concomitant]
  6. LAMISIL [Concomitant]

REACTIONS (4)
  - BURNING SENSATION [None]
  - ERYTHEMA [None]
  - FACIAL PAIN [None]
  - PRURITUS [None]
